FAERS Safety Report 20704378 (Version 1)
Quarter: 2022Q2

REPORT INFORMATION
  Report Type: Report from Study
  Country: JP (occurrence: JP)
  Receive Date: 20220413
  Receipt Date: 20220413
  Transmission Date: 20220721
  Serious: Yes (Other)
  Sender: FDA-Public Use
  Company Number: JP-RECORDATI RARE DISEASE INC.-2022001352

PATIENT
  Age: 0 Year
  Sex: Male
  Weight: .83 kg

DRUGS (15)
  1. NEOPROFEN [Suspect]
     Active Substance: IBUPROFEN LYSINE
     Indication: Patent ductus arteriosus
     Dosage: 8 MILLIGRAM
     Route: 042
     Dates: start: 20210703, end: 20210710
  2. NEOPROFEN [Suspect]
     Active Substance: IBUPROFEN LYSINE
     Dosage: 8 MILLIGRAM
     Route: 042
     Dates: start: 20210709, end: 20210709
  3. NEOPROFEN [Suspect]
     Active Substance: IBUPROFEN LYSINE
     Dosage: 4 MILLIGRAM
     Route: 042
     Dates: start: 20210710, end: 20210710
  4. FENTANYL ACTAVIS [FENTANYL CITRATE] [Concomitant]
     Indication: Intraventricular haemorrhage
     Dosage: UNK
     Route: 042
     Dates: start: 20210702, end: 20210708
  5. FENTANYL ACTAVIS [FENTANYL CITRATE] [Concomitant]
     Indication: Neonatal intestinal perforation
  6. MEROPENEM [Concomitant]
     Active Substance: MEROPENEM
     Indication: Neonatal intestinal perforation
     Dosage: UNK
     Route: 042
     Dates: start: 20210702, end: 20210717
  7. TEICOPLANIN [Concomitant]
     Active Substance: TEICOPLANIN
     Indication: Neonatal intestinal perforation
     Dosage: UNK
     Route: 042
     Dates: start: 20210702, end: 20210717
  8. MICAFUNGIN [MICAFUNGIN SODIUM] [Concomitant]
     Indication: Neonatal intestinal perforation
     Dosage: UNK
     Route: 042
     Dates: start: 20210702, end: 20210717
  9. MENATETRENONE [Concomitant]
     Active Substance: MENATETRENONE
     Indication: Neonatal intestinal perforation
     Dosage: UNK
     Route: 042
     Dates: start: 20210703, end: 20210706
  10. MENATETRENONE [Concomitant]
     Active Substance: MENATETRENONE
     Indication: Intraventricular haemorrhage
  11. MIDAZOLAM [Concomitant]
     Active Substance: MIDAZOLAM
     Indication: Intraventricular haemorrhage
     Dosage: UNK
     Route: 042
     Dates: start: 20210703, end: 20210703
  12. DOPAMINE [Concomitant]
     Active Substance: DOPAMINE HYDROCHLORIDE
     Indication: Circulatory collapse
     Dosage: UNK
     Route: 042
     Dates: start: 20210703, end: 20210802
  13. DOBUTREX [Concomitant]
     Active Substance: DOBUTAMINE HYDROCHLORIDE
     Indication: Circulatory collapse
     Dosage: UNK
     Route: 042
     Dates: start: 20210703, end: 20210802
  14. SOLU-CORTEF [Concomitant]
     Active Substance: HYDROCORTISONE SODIUM SUCCINATE
     Indication: Circulatory collapse
     Dosage: UNK
     Route: 042
     Dates: start: 20210703, end: 20210707
  15. PHENOBARBITAL SODIUM [Concomitant]
     Active Substance: PHENOBARBITAL SODIUM
     Indication: Intraventricular haemorrhage
     Dosage: UNK
     Route: 042
     Dates: start: 20210704, end: 20210709

REACTIONS (1)
  - Pulmonary haemorrhage [Recovered/Resolved]

NARRATIVE: CASE EVENT DATE: 20210709
